FAERS Safety Report 5513666-X (Version None)
Quarter: 2007Q4

REPORT INFORMATION
  Report Type: 
  Country: None (occurrence: None)
  Receive Date: 20071112
  Receipt Date: 20071017
  Transmission Date: 20080405
  Serious: No
  Sender: FDA-Public Use
  Company Number: US-BOEHRINGER INGELHEIM PHARMACEUTICALS, INC.-2007-BP-22909BP

PATIENT
  Sex: Male

DRUGS (6)
  1. COMBIVENT [Suspect]
     Indication: BRONCHITIS
     Route: 055
     Dates: start: 20071012
  2. COMBIVENT [Suspect]
     Indication: PNEUMONIA
  3. IBUPROFEN [Suspect]
     Indication: PAIN
     Route: 048
     Dates: start: 20071016
  4. MICARDIS [Concomitant]
     Indication: HYPERTENSION
  5. METFORMIN HCL [Concomitant]
     Indication: DIABETES MELLITUS
  6. PREVACID [Concomitant]
     Indication: REFLUX OESOPHAGITIS

REACTIONS (1)
  - DIZZINESS [None]
